FAERS Safety Report 11201543 (Version 1)
Quarter: 2015Q2

REPORT INFORMATION
  Report Type: Spontaneous
  Country: US (occurrence: None)
  Receive Date: 20150617
  Receipt Date: 20150617
  Transmission Date: 20150821
  Serious: Yes (Hospitalization)
  Sender: FDA-Public Use
  Company Number: US-002057

PATIENT
  Age: 65 Year
  Sex: Male

DRUGS (1)
  1. GATTEX [Suspect]
     Active Substance: TEDUGLUTIDE\WATER
     Indication: SHORT-BOWEL SYNDROME
     Route: 058
     Dates: start: 20150401

REACTIONS (5)
  - Hyperhidrosis [None]
  - Drug dose omission [None]
  - Dyspnoea [None]
  - Chest pain [None]
  - Coronary artery occlusion [None]

NARRATIVE: CASE EVENT DATE: 201505
